FAERS Safety Report 19737914 (Version 1)
Quarter: 2021Q3

REPORT INFORMATION
  Report Type: Report from Study
  Country: GB (occurrence: GB)
  Receive Date: 20210823
  Receipt Date: 20210823
  Transmission Date: 20211014
  Serious: Yes (Hospitalization, Other)
  Sender: FDA-Public Use
  Company Number: GB-MYLANLABS-2021M1053298

PATIENT
  Age: 27 Year
  Sex: Female

DRUGS (9)
  1. METHOTREXATE. [Suspect]
     Active Substance: METHOTREXATE
     Indication: PRODUCT USED FOR UNKNOWN INDICATION
     Dosage: UNK (1ST TRIMESTER)
  2. CIMZIA [Suspect]
     Active Substance: CERTOLIZUMAB PEGOL
     Dosage: 200 MG, CYCLIC (200 MG, EV 2 WEEKS(QOW) (EVERY 2 WEEKS))
     Route: 058
     Dates: start: 20180508
  3. ERGOCALCIFEROL. [Concomitant]
     Active Substance: ERGOCALCIFEROL
     Dosage: UNK
  4. CIMZIA [Suspect]
     Active Substance: CERTOLIZUMAB PEGOL
     Indication: PSORIATIC ARTHROPATHY
     Dosage: 200 MG, CYCLIC (EVERY 2 WEEKS)
     Route: 058
     Dates: start: 20200815, end: 2020
  5. CIMZIA [Suspect]
     Active Substance: CERTOLIZUMAB PEGOL
     Indication: RHEUMATOID ARTHRITIS
     Dosage: 200 MILLIGRAM, CYCLE (EVERY 2 WEEKS)
     Route: 058
     Dates: start: 20180430
  6. COLECALCIFEROL [Concomitant]
     Active Substance: CHOLECALCIFEROL
     Dosage: UNK
  7. CIMZIA [Suspect]
     Active Substance: CERTOLIZUMAB PEGOL
     Dosage: 200 MG, CYCLIC (EVERY 2 WEEKS)
     Route: 058
  8. FOLIC ACID. [Concomitant]
     Active Substance: FOLIC ACID
     Indication: PRODUCT USED FOR UNKNOWN INDICATION
     Dosage: UNK
  9. VITAMIN D                          /07503901/ [Concomitant]
     Active Substance: VITAMIN D NOS
     Dosage: UNK

REACTIONS (18)
  - Eating disorder [Unknown]
  - Nasopharyngitis [Recovering/Resolving]
  - Bacterial vaginosis [Unknown]
  - Diarrhoea [Recovering/Resolving]
  - Maternal exposure during pregnancy [Recovered/Resolved]
  - Illness [Unknown]
  - Poor quality sleep [Unknown]
  - Headache [Unknown]
  - Infection [Unknown]
  - Maternal exposure before pregnancy [Unknown]
  - Oropharyngeal pain [Recovering/Resolving]
  - Arthritis [Unknown]
  - Alopecia [Unknown]
  - Cough [Unknown]
  - Emotional disorder [Unknown]
  - Ear infection [Recovering/Resolving]
  - Inflammation [Unknown]
  - Maternal exposure during breast feeding [Unknown]

NARRATIVE: CASE EVENT DATE: 2019
